FAERS Safety Report 6683844-5 (Version None)
Quarter: 2010Q2

REPORT INFORMATION
  Report Type: 
  Country: None (occurrence: None)
  Receive Date: 20100416
  Receipt Date: 20100407
  Transmission Date: 20101027
  Serious: Yes (Hospitalization, Other)
  Sender: FDA-Public Use
  Company Number: US-RB-006644-10

PATIENT
  Age: 59 Year
  Sex: Female

DRUGS (5)
  1. MUCINEX [Suspect]
     Route: 048
     Dates: start: 20090101
  2. MUCINEX [Suspect]
     Route: 048
     Dates: start: 20100101
  3. MUCINEX DM [Suspect]
     Indication: RESPIRATORY TRACT INFECTION
     Dosage: TOOK THE PRODUCT TWICE DAILY OR AS NEEDED FROM 01-DEC-2009 TILL 03-JAN-2010, TOTAL OF 12 TABLETS
     Route: 048
     Dates: start: 20091201
  4. MUCINEX DM [Suspect]
     Route: 048
     Dates: start: 20100101
  5. ACTONEL [Concomitant]
     Indication: OSTEOPENIA

REACTIONS (10)
  - ABNORMAL BEHAVIOUR [None]
  - BIPOLAR DISORDER [None]
  - BIPOLAR I DISORDER [None]
  - FEELING ABNORMAL [None]
  - HALLUCINATION, AUDITORY [None]
  - INSOMNIA [None]
  - MALAISE [None]
  - PSYCHOMOTOR HYPERACTIVITY [None]
  - REFUSAL OF TREATMENT BY PATIENT [None]
  - SPEECH DISORDER [None]
